FAERS Safety Report 8283448-7 (Version None)
Quarter: 2012Q2

REPORT INFORMATION
  Report Type: 
  Country: None (occurrence: None)
  Receive Date: 20120413
  Receipt Date: 20120404
  Transmission Date: 20120825
  Serious: Yes (Other)
  Sender: FDA-Public Use
  Company Number: US-ASTRAZENECA-2011SE38982

PATIENT
  Age: 81 Year
  Sex: Female

DRUGS (5)
  1. NEXIUM [Suspect]
     Route: 048
  2. SINGULAIR [Concomitant]
  3. SYMBICORT [Suspect]
     Route: 055
  4. CRESTOR [Suspect]
     Route: 048
  5. OXYGEN [Concomitant]

REACTIONS (3)
  - KIDNEY INFECTION [None]
  - CHRONIC OBSTRUCTIVE PULMONARY DISEASE [None]
  - SKIN CANCER [None]
